FAERS Safety Report 8855964 (Version 2)
Quarter: 2012Q4

REPORT INFORMATION
  Report Type: 
  Country: US (occurrence: US)
  Receive Date: 20121023
  Receipt Date: 20121204
  Transmission Date: 20130627
  Serious: No
  Sender: FDA-Public Use
  Company Number: US-AMGEN-USASP2012058464

PATIENT
  Age: 54 Year
  Sex: Female

DRUGS (1)
  1. ENBREL [Suspect]
     Indication: RHEUMATOID ARTHRITIS
     Dosage: 50 mg, every 10 days
     Route: 058
     Dates: start: 20040401, end: 20120826

REACTIONS (3)
  - Cataract [Recovered/Resolved]
  - Rheumatoid arthritis [Recovered/Resolved]
  - Limb operation [Recovered/Resolved]
